FAERS Safety Report 13408659 (Version 2)
Quarter: 2017Q4

REPORT INFORMATION
  Report Type: Spontaneous
  Country: US (occurrence: US)
  Receive Date: 20170406
  Receipt Date: 20171123
  Transmission Date: 20180320
  Serious: No
  Sender: FDA-Public Use
  Company Number: US-JNJFOC-20170223223

PATIENT
  Sex: Male

DRUGS (5)
  1. RISPERDAL [Suspect]
     Active Substance: RISPERIDONE
     Indication: AGGRESSION
     Dosage: VARYING DOSES OF 0.125 MG, 0.25 MG AND 0.25 MG BID
     Route: 048
     Dates: start: 20010122, end: 20041013
  2. RISPERDAL [Suspect]
     Active Substance: RISPERIDONE
     Indication: INTENTIONAL SELF-INJURY
     Dosage: VARYING DOSES OF 0.125 MG, 0.25 MG AND 0.25 MG BID
     Route: 048
     Dates: start: 20010122, end: 20041013
  3. RISPERDAL [Suspect]
     Active Substance: RISPERIDONE
     Indication: ATTENTION DEFICIT/HYPERACTIVITY DISORDER
     Dosage: VARYING DOSES OF 0.125 MG, 0.25 MG AND 0.25 MG BID
     Route: 048
     Dates: start: 20010122, end: 20041013
  4. RISPERDAL [Suspect]
     Active Substance: RISPERIDONE
     Indication: ADJUSTMENT DISORDER
     Dosage: VARYING DOSES OF 0.125 MG, 0.25 MG AND 0.25 MG BID
     Route: 048
     Dates: start: 20010122, end: 20041013
  5. RISPERDAL [Suspect]
     Active Substance: RISPERIDONE
     Indication: AGITATION
     Dosage: VARYING DOSES OF 0.125 MG, 0.25 MG AND 0.25 MG BID
     Route: 048
     Dates: start: 20010122, end: 20041013

REACTIONS (2)
  - Emotional disorder [Unknown]
  - Gynaecomastia [Unknown]
